FAERS Safety Report 13826685 (Version 1)
Quarter: 2017Q3

REPORT INFORMATION
  Report Type: Spontaneous
  Country: US (occurrence: US)
  Receive Date: 20170802
  Receipt Date: 20170802
  Transmission Date: 20171127
  Serious: No
  Sender: FDA-Public Use
  Company Number: US-ROCHE-643457

PATIENT
  Age: 55 Year
  Sex: Female
  Weight: 57.6 kg

DRUGS (1)
  1. BONIVA [Suspect]
     Active Substance: IBANDRONATE SODIUM
     Indication: OSTEOPENIA
     Dosage: FORM: PILL
     Route: 048
     Dates: start: 20090701, end: 20090701

REACTIONS (3)
  - Pain in extremity [Recovering/Resolving]
  - Myalgia [Unknown]
  - Bone pain [Recovering/Resolving]

NARRATIVE: CASE EVENT DATE: 200907
